FAERS Safety Report 7611242-6 (Version None)
Quarter: 2011Q3

REPORT INFORMATION
  Report Type: 
  Country: None (occurrence: None)
  Receive Date: 20110707
  Receipt Date: 20110622
  Transmission Date: 20111222
  Serious: Yes (Hospitalization, Other)
  Sender: FDA-Public Use
  Company Number: 2011MA007922

PATIENT
  Age: 15 Year
  Sex: Male

DRUGS (1)
  1. BUPROPION HYDROCHLORIDE (WELLBUTRIN XL) [Suspect]
     Indication: OVERDOSE
     Dosage: 300 MG;1X

REACTIONS (17)
  - GRAND MAL CONVULSION [None]
  - CLONUS [None]
  - OVERDOSE [None]
  - INCOHERENT [None]
  - WHITE BLOOD CELL COUNT INCREASED [None]
  - NO THERAPEUTIC RESPONSE [None]
  - DEHYDRATION [None]
  - SEROTONIN SYNDROME [None]
  - CONFUSIONAL STATE [None]
  - RESPIRATORY RATE INCREASED [None]
  - URINARY RETENTION [None]
  - AGITATION [None]
  - FLUSHING [None]
  - BLOOD CREATINE PHOSPHOKINASE INCREASED [None]
  - MYDRIASIS [None]
  - MUSCLE RIGIDITY [None]
  - DELIRIUM [None]
